FAERS Safety Report 20438022 (Version 1)
Quarter: 2022Q1

REPORT INFORMATION
  Report Type: Spontaneous
  Country: PK (occurrence: None)
  Receive Date: 20220204
  Receipt Date: 20220204
  Transmission Date: 20220423
  Serious: Yes (Hospitalization, Disabling)
  Sender: FDA-Public Use
  Company Number: None

PATIENT
  Age: 85 Year
  Sex: Female
  Weight: 44 kg

DRUGS (4)
  1. XARELTO [Suspect]
     Active Substance: RIVAROXABAN
     Indication: Cerebrovascular accident prophylaxis
     Dosage: FREQUENCY : DAILY;?OTHER ROUTE : NASO-GASTRIC TUBE.;?
     Route: 050
  2. LASIX [Concomitant]
     Active Substance: FUROSEMIDE
  3. LANOXIN [Concomitant]
     Active Substance: DIGOXIN
  4. ALLOPURINOL [Concomitant]
     Active Substance: ALLOPURINOL

REACTIONS (3)
  - Peripheral swelling [None]
  - Haemarthrosis [None]
  - Joint effusion [None]

NARRATIVE: CASE EVENT DATE: 20220128
